FAERS Safety Report 9302020 (Version 4)
Quarter: 2013Q3

REPORT INFORMATION
  Report Type: Spontaneous
  Country: US (occurrence: US)
  Receive Date: 20130521
  Receipt Date: 20130823
  Transmission Date: 20140515
  Serious: Yes (Other)
  Sender: FDA-Public Use
  Company Number: CHPA2013US008522

PATIENT
  Age: 76 Year
  Sex: Female

DRUGS (12)
  1. VOLTAREN GEL [Suspect]
     Indication: ARTHRITIS
     Dosage: A LITTLE, UNK
     Route: 061
  2. CYMBALTA [Concomitant]
     Dosage: 60 MG, QD
     Dates: start: 2011
  3. GLUCOSAMINE + CHONDROITIN [Concomitant]
     Dosage: UNK
     Dates: start: 1998
  4. HYDROCODONE [Concomitant]
     Dosage: 5 MG, PRN
     Dates: start: 1993
  5. ATENOLOL [Concomitant]
     Dosage: 50 MG, QD
  6. LISINOPRIL [Concomitant]
     Dosage: 40 MG, QD
  7. OMEPRAZOLE [Concomitant]
     Dosage: 40 MG, QD
  8. DOCUSATE [Concomitant]
     Indication: FAECES HARD
     Dosage: 100 MG, BID
  9. ALPRAZOLAM [Concomitant]
     Indication: ANXIETY
     Dosage: UNK, PRN
  10. KLOR-CON [Concomitant]
     Indication: FLUID RETENTION
     Dosage: UNK, PRN
  11. FLUTICASONE PROPIONATE [Concomitant]
     Indication: ALLERGIC SINUSITIS
     Dosage: 50 MG, UNK
     Route: 045
  12. TRIAMCINOLONE [Concomitant]
     Indication: SCAR
     Dosage: UNK, UNK

REACTIONS (7)
  - Arthritis [Recovered/Resolved]
  - Volume blood decreased [Recovered/Resolved]
  - Heart rate increased [Recovered/Resolved]
  - Feeling hot [Recovered/Resolved]
  - Therapeutic response unexpected [Unknown]
  - Wrong technique in drug usage process [Unknown]
  - Drug administered at inappropriate site [Unknown]
